FAERS Safety Report 25584205 (Version 1)
Quarter: 2025Q3

REPORT INFORMATION
  Report Type: Spontaneous
  Country: GB (occurrence: GB)
  Receive Date: 20250721
  Receipt Date: 20250721
  Transmission Date: 20251020
  Serious: Yes (Other)
  Sender: CELLTRION
  Company Number: GB-BAXTER-2025BAX018012

PATIENT

DRUGS (3)
  1. INFLIXIMAB [Suspect]
     Active Substance: INFLIXIMAB
     Indication: Colitis ulcerative
     Route: 042
  2. SODIUM CHLORIDE [Suspect]
     Active Substance: SODIUM CHLORIDE
     Indication: Product used for unknown indication
     Route: 042
  3. WATER [Suspect]
     Active Substance: WATER
     Indication: Product used for unknown indication
     Route: 042

REACTIONS (2)
  - Arterial stenosis [Not Recovered/Not Resolved]
  - Intentional product use issue [Unknown]
